FAERS Safety Report 4891055-9 (Version None)
Quarter: 2006Q1

REPORT INFORMATION
  Report Type: 
  Country: None (occurrence: None)
  Receive Date: 20060123
  Receipt Date: 20060110
  Transmission Date: 20060701
  Serious: Yes (Life-Threatening, Hospitalization)
  Sender: FDA-Public Use
  Company Number: 2006006173

PATIENT
  Age: 72 Year
  Sex: Male
  Weight: 101.1975 kg

DRUGS (10)
  1. NORVASC [Suspect]
     Indication: ILL-DEFINED DISORDER
     Dosage: (5 MG,)
  2. LIPITOR [Suspect]
     Indication: ILL-DEFINED DISORDER
     Dosage: (20 MG,)
  3. LISINOPRIL [Suspect]
     Indication: ILL-DEFINED DISORDER
     Dosage: (20 MG,)
  4. COREG [Suspect]
     Indication: CARDIAC DISORDER
     Dosage: SEE IMAGE
     Route: 048
     Dates: start: 20050805, end: 20050827
  5. COREG [Suspect]
     Indication: CARDIAC DISORDER
     Dosage: SEE IMAGE
     Route: 048
     Dates: start: 20050828, end: 20050830
  6. COREG [Suspect]
     Indication: CARDIAC DISORDER
     Dosage: SEE IMAGE
     Route: 048
     Dates: start: 20050831, end: 20050901
  7. FUROSEMIDE [Suspect]
     Indication: ILL-DEFINED DISORDER
     Dosage: (20 MG,)
  8. COUMADIN [Suspect]
     Indication: ILL-DEFINED DISORDER
  9. AMIODARONE HCL [Suspect]
     Indication: ILL-DEFINED DISORDER
     Dosage: 400 MG (200 MG, TWICE DAILY),
  10. POTASSIUM (POTASSIUM) [Suspect]
     Indication: ILL-DEFINED DISORDER
     Dosage: (10 MEQ,)

REACTIONS (14)
  - APHASIA [None]
  - ASTHENIA [None]
  - DIZZINESS [None]
  - DYSPNOEA [None]
  - FOAMING AT MOUTH [None]
  - HALLUCINATION, AUDITORY [None]
  - HEADACHE [None]
  - HEART RATE DECREASED [None]
  - LOSS OF CONSCIOUSNESS [None]
  - MOVEMENT DISORDER [None]
  - NAUSEA [None]
  - SYNCOPE [None]
  - VERTIGO [None]
  - VOMITING [None]
